FAERS Safety Report 23915200 (Version 1)
Quarter: 2024Q2

REPORT INFORMATION
  Report Type: Spontaneous
  Country: US (occurrence: None)
  Receive Date: 20240529
  Receipt Date: 20240529
  Transmission Date: 20240716
  Serious: Yes (Hospitalization)
  Sender: FDA-Public Use
  Company Number: None

PATIENT
  Age: 73 Year
  Sex: Male
  Weight: 101.7 kg

DRUGS (3)
  1. DARATUMUMAB [Suspect]
     Active Substance: DARATUMUMAB
  2. DEXAMETHASONE [Suspect]
     Active Substance: DEXAMETHASONE
  3. LENALIDOMIDE [Suspect]
     Active Substance: LENALIDOMIDE

REACTIONS (8)
  - Dyspnoea [None]
  - Weight increased [None]
  - Tachypnoea [None]
  - Oedema peripheral [None]
  - Pleural effusion [None]
  - Atelectasis [None]
  - Blood creatinine increased [None]
  - Haemoglobin decreased [None]

NARRATIVE: CASE EVENT DATE: 20240214
